FAERS Safety Report 8819442 (Version 1)
Quarter: 2012Q4

REPORT INFORMATION
  Report Type: 
  Country: US (occurrence: US)
  Receive Date: 20121001
  Receipt Date: 20121001
  Transmission Date: 20130627
  Serious: No
  Sender: FDA-Public Use
  Company Number: US-009507513-1209USA003360

PATIENT
  Sex: Female
  Weight: 68.93 kg

DRUGS (5)
  1. PEGINTRON [Suspect]
     Dosage: 0.4 ml, qw
     Route: 058
  2. REBETOL [Suspect]
     Dosage: UNK
  3. SYNTHROID [Concomitant]
  4. TOPAMAX [Concomitant]
  5. IBU-TAB [Concomitant]

REACTIONS (21)
  - Anal pruritus [Unknown]
  - Injection site bruising [Unknown]
  - Injection site erythema [Unknown]
  - Dysgeusia [Unknown]
  - Abdominal distension [Unknown]
  - Weight decreased [Unknown]
  - Alopecia [Unknown]
  - Candidiasis [Unknown]
  - Gingival bleeding [Unknown]
  - Dry mouth [Unknown]
  - Thirst [Unknown]
  - Back pain [Unknown]
  - Arthralgia [Unknown]
  - Dry skin [Unknown]
  - Headache [Unknown]
  - Haemoglobin decreased [Unknown]
  - Chills [Unknown]
  - Decreased appetite [Unknown]
  - Rash [Unknown]
  - Fatigue [Unknown]
  - Nausea [Unknown]
